FAERS Safety Report 14320223 (Version 3)
Quarter: 2018Q1

REPORT INFORMATION
  Report Type: Spontaneous
  Country: IT (occurrence: IT)
  Receive Date: 20171222
  Receipt Date: 20180316
  Transmission Date: 20180509
  Serious: Yes (Other)
  Sender: FDA-Public Use
  Company Number: IT-BAUSCH-BL-2017-034300

PATIENT
  Age: 50 Year
  Sex: Female

DRUGS (2)
  1. DICLOFENAC [Suspect]
     Active Substance: DICLOFENAC
     Indication: ARTHRITIS
     Route: 048
     Dates: start: 20171028, end: 20171028
  2. MUSCORIL [Suspect]
     Active Substance: THIOCOLCHICOSIDE
     Indication: PAIN
     Route: 048
     Dates: start: 20171028, end: 20171028

REACTIONS (1)
  - Urticaria [Recovered/Resolved]

NARRATIVE: CASE EVENT DATE: 20171028
